FAERS Safety Report 8976533 (Version 2)
Quarter: 2013Q1

REPORT INFORMATION
  Report Type: Spontaneous
  Country: FR (occurrence: FR)
  Receive Date: 20121220
  Receipt Date: 20130104
  Transmission Date: 20140127
  Serious: Yes (Life-Threatening, Hospitalization)
  Sender: FDA-Public Use
  Company Number: FR-JNJFOC-20121204605

PATIENT
  Age: 71 Year
  Sex: Male
  Weight: 88 kg

DRUGS (4)
  1. ZYTIGA [Suspect]
     Indication: METASTASES TO BONE
     Route: 048
     Dates: start: 20121108, end: 20121112
  2. ZYTIGA [Suspect]
     Indication: PROSTATE CANCER
     Route: 048
     Dates: start: 20121108, end: 20121112
  3. DUROGESIC [Suspect]
     Indication: PAIN
     Route: 062
     Dates: start: 20121106
  4. MORPHINE [Suspect]
     Indication: PAIN
     Route: 065

REACTIONS (3)
  - Overdose [Recovered/Resolved]
  - Pneumonia aspiration [Unknown]
  - Septic shock [Unknown]
